FAERS Safety Report 8534786-1 (Version None)
Quarter: 2012Q3

REPORT INFORMATION
  Report Type: 
  Country: None (occurrence: None)
  Receive Date: 20120724
  Receipt Date: 20120712
  Transmission Date: 20120928
  Serious: Yes (Other)
  Sender: FDA-Public Use
  Company Number: US-BAXTER-2011BH015693

PATIENT
  Sex: Female

DRUGS (31)
  1. GAMMAGARD LIQUID [Suspect]
     Dates: start: 20080605, end: 20080606
  2. GAMMAR [Suspect]
     Dates: start: 20031114
  3. GAMMAGARD LIQUID [Suspect]
     Dates: start: 20070718, end: 20070721
  4. GAMMAGARD LIQUID [Suspect]
     Dates: start: 20080215
  5. VENOGLOBULIN [Suspect]
     Dates: start: 20030922
  6. GAMMAR [Suspect]
     Dates: start: 20031111, end: 20031112
  7. GAMMAR [Suspect]
     Dates: start: 20040928, end: 20040930
  8. GAMMAGARD LIQUID [Suspect]
     Route: 065
     Dates: start: 20070701
  9. VENOGLOBULIN [Suspect]
     Dates: start: 20030630
  10. VENOGLOBULIN [Suspect]
     Dates: start: 20030908, end: 20030910
  11. GAMMAGARD LIQUID [Suspect]
     Dates: start: 20080101
  12. GAMMAGARD LIQUID [Suspect]
     Dates: start: 20080402, end: 20080404
  13. GAMMAGARD S/D [Suspect]
     Dates: start: 20070718, end: 20070721
  14. GAMMAGARD S/D [Suspect]
     Dates: start: 20080101
  15. GAMMAGARD S/D [Suspect]
     Dates: start: 20080215
  16. GAMMAGARD S/D [Suspect]
     Dates: start: 20080605, end: 20080606
  17. VENOGLOBULIN [Suspect]
     Dates: start: 20030811, end: 20030813
  18. CARIMUNE [Suspect]
     Dates: start: 20070321, end: 20070324
  19. GAMMAR [Suspect]
     Dates: start: 20041221, end: 20041223
  20. GAMMAGARD S/D [Suspect]
     Dates: start: 20070701
  21. VENOGLOBULIN [Suspect]
     Dates: start: 20030701, end: 20030702
  22. VENOGLOBULIN [Suspect]
     Dates: start: 20030731
  23. VENOGLOBULIN [Suspect]
     Dates: start: 20031106
  24. GAMMAR [Suspect]
     Dates: start: 20031222
  25. VENOGLOBULIN [Suspect]
     Dates: start: 20030905
  26. PANGLOBULIN [Suspect]
     Dates: start: 20070321, end: 20070324
  27. GAMMAR [Suspect]
     Dates: start: 20041027, end: 20041029
  28. GAMMAGARD S/D [Suspect]
     Dates: start: 20080402, end: 20080404
  29. VENOGLOBULIN [Suspect]
     Dates: start: 20031007, end: 20031008
  30. VENOGLOBULIN [Suspect]
     Dates: start: 20031110, end: 20031112
  31. GAMMAR [Suspect]
     Route: 042
     Dates: start: 20031007, end: 20031008

REACTIONS (3)
  - SHOCK [None]
  - HEPATITIS C [None]
  - PAIN [None]
